FAERS Safety Report 7307374-2 (Version None)
Quarter: 2011Q1

REPORT INFORMATION
  Report Type: 
  Country: None (occurrence: None)
  Receive Date: 20110223
  Receipt Date: 20110221
  Transmission Date: 20110831
  Serious: Yes (Death, Life-Threatening, Hospitalization)
  Sender: FDA-Public Use
  Company Number: ES-SANOFI-AVENTIS-200821577GDDC

PATIENT
  Age: 65 Year
  Sex: Male
  Weight: 78.5 kg

DRUGS (4)
  1. BLINDED THERAPY [Suspect]
     Indication: NON-SMALL CELL LUNG CANCER
     Dosage: DOSE UNIT: 6 MG/KG
     Route: 042
     Dates: start: 20081203, end: 20081203
  2. CORTICOSTEROIDS [Concomitant]
  3. DOCETAXEL [Suspect]
     Indication: NON-SMALL CELL LUNG CANCER
     Dosage: DOSE UNIT: 75 MG/M**2
     Route: 042
     Dates: start: 20081203, end: 20081203
  4. CLEXANE [Concomitant]
     Dates: start: 20071109, end: 20081206

REACTIONS (1)
  - PULMONARY EMBOLISM [None]
